FAERS Safety Report 5201042-9 (Version None)
Quarter: 2007Q1

REPORT INFORMATION
  Report Type: 
  Country: None (occurrence: None)
  Receive Date: 20070108
  Receipt Date: 20070105
  Transmission Date: 20070707
  Serious: Yes (Death)
  Sender: FDA-Public Use
  Company Number: US-ELI_LILLY_AND_COMPANY-US200608005393

PATIENT
  Age: 37 Year
  Sex: Female
  Weight: 113.38 kg

DRUGS (4)
  1. ZYPREXA [Suspect]
     Dosage: 5 MG, UNK
     Dates: start: 19980101, end: 20030101
  2. QUETIAPINE FUMARATE [Concomitant]
     Dates: start: 19990101, end: 20030101
  3. RISPERIDONE [Concomitant]
     Dates: start: 19990101, end: 20030101
  4. PREDNISONE TAB [Concomitant]
     Dates: start: 20031201

REACTIONS (3)
  - DEATH [None]
  - HYPERGLYCAEMIA [None]
  - METABOLIC DISORDER [None]
